FAERS Safety Report 5153855-X (Version None)
Quarter: 2006Q4

REPORT INFORMATION
  Report Type: 
  Country: None (occurrence: None)
  Receive Date: 20061120
  Receipt Date: 20061108
  Transmission Date: 20070319
  Serious: Yes (Other)
  Sender: FDA-Public Use
  Company Number: PHBS2006BR17323

PATIENT
  Age: 67 Year
  Sex: Female
  Weight: 85 kg

DRUGS (5)
  1. LOVASTATIN [Concomitant]
     Indication: BLOOD CHOLESTEROL INCREASED
     Dosage: 40 MG, QD
     Route: 048
  2. LISINOPRIL [Concomitant]
     Indication: HYPERTENSION
     Dosage: 20 MG, QD
     Route: 048
  3. GLUCOFASI [Concomitant]
     Indication: DIABETES MELLITUS
     Dosage: 500 MG, QD
     Route: 048
  4. LORAX [Concomitant]
     Indication: SLEEP DISORDER
     Dosage: 2 MG, QD
     Route: 048
  5. ZELMAC [Suspect]
     Indication: DIVERTICULITIS
     Dosage: 6 MG, QD
     Route: 048

REACTIONS (3)
  - DYSPNOEA [None]
  - MALAISE [None]
  - TACHYCARDIA [None]
